FAERS Safety Report 5792516-0 (Version None)
Quarter: 2008Q2

REPORT INFORMATION
  Report Type: 
  Country: None (occurrence: None)
  Receive Date: 20080624
  Receipt Date: 20080613
  Transmission Date: 20081010
  Serious: Yes (Hospitalization)
  Sender: FDA-Public Use
  Company Number: VNL_01027_2008

PATIENT
  Sex: Female

DRUGS (6)
  1. APO-GO (APO-GO - APOMORPHINE HYDROCHLORIDE (NOT SPECIFIED) [Suspect]
     Indication: PARKINSON'S DISEASE
     Dosage: 7 MG TID SUBCUTANEOUS
     Route: 058
     Dates: start: 20070101, end: 20080224
  2. STALEVO 100 [Concomitant]
  3. MADOFAR /00349201/ [Concomitant]
  4. MIRAPEXIN [Concomitant]
  5. AZILECT /01759902/ [Concomitant]
  6. CILROTON [Concomitant]

REACTIONS (6)
  - ANGIOPATHY [None]
  - HYPERPLASIA [None]
  - INJECTION SITE INFECTION [None]
  - INJECTION SITE NECROSIS [None]
  - INJECTION SITE ULCER [None]
  - MEDICAL DEVICE COMPLICATION [None]
